FAERS Safety Report 24770424 (Version 2)
Quarter: 2024Q4

REPORT INFORMATION
  Report Type: Spontaneous
  Country: US (occurrence: US)
  Receive Date: 20241224
  Receipt Date: 20241227
  Transmission Date: 20250115
  Serious: No
  Sender: AMGEN
  Company Number: US-AMGEN-USASP2024251040

PATIENT
  Sex: Male

DRUGS (9)
  1. PROCYSBI [Suspect]
     Active Substance: CYSTEAMINE BITARTRATE
     Indication: Cystinosis
     Dosage: UNK, BID (5 CAPSULES TWO TIMES A DAY)
     Route: 065
  2. IRON CHEWS [Concomitant]
     Active Substance: IRON PENTACARBONYL
     Dosage: 15 MILLIGRAM
  3. GENOTROPIN [Concomitant]
     Active Substance: SOMATROPIN
     Dosage: UNK 0.2MG/0.25 SYRINGE
  4. CALCITRIOL [Concomitant]
     Active Substance: CALCITRIOL
     Dosage: 0.25 MICROGRAM
  5. VITAMIN D3 [Concomitant]
     Active Substance: CHOLECALCIFEROL
     Dosage: 10 MICROGRAM
  6. OMEPRAZOLE [Concomitant]
     Active Substance: OMEPRAZOLE
     Dosage: 10 MILLIGRAM
  7. ONDANSETRON HYDROCHLORIDE [Concomitant]
     Active Substance: ONDANSETRON HYDROCHLORIDE
     Dosage: 4 MILLIGRAM
  8. LEVOCARNITINE [Concomitant]
     Active Substance: LEVOCARNITINE
     Dosage: 330 MILLIGRAM
  9. SODIUM BICARBONATE [Concomitant]
     Active Substance: SODIUM BICARBONATE
     Dosage: 325 MILLIGRAM

REACTIONS (2)
  - Epistaxis [Unknown]
  - Inappropriate schedule of product administration [Unknown]
